FAERS Safety Report 7741248-8 (Version None)
Quarter: 2011Q3

REPORT INFORMATION
  Report Type: 
  Country: None (occurrence: None)
  Receive Date: 20110909
  Receipt Date: 20110907
  Transmission Date: 20111222
  Serious: Yes (Other)
  Sender: FDA-Public Use
  Company Number: US-PFIZER INC-2011202485

PATIENT
  Sex: Female
  Weight: 57.596 kg

DRUGS (9)
  1. GABAPENTIN [Suspect]
     Indication: FIBROMYALGIA
     Dosage: 100 MG, 2X/DAY
     Route: 048
     Dates: start: 20101201
  2. DICYCLOMINE [Concomitant]
     Indication: GASTRIC DISORDER
     Dosage: 10 MG, 3X/DAY
  3. CYMBALTA [Concomitant]
     Indication: BLOOD CHOLESTEROL DECREASED
     Dosage: UNK
  4. PROTONIX [Suspect]
     Dosage: 40 MG, 1X/DAY
     Route: 048
     Dates: start: 20100101
  5. GABAPENTIN [Suspect]
     Indication: NEURALGIA
  6. ZOCOR [Concomitant]
     Indication: BLOOD CHOLESTEROL DECREASED
     Dosage: UNK
  7. FLEXERIL [Concomitant]
     Dosage: 10 MG, UNK
  8. CELEBREX [Suspect]
     Indication: OSTEOARTHRITIS
     Dosage: 200 MG, 2X/DAY
     Route: 048
  9. CELEBREX [Suspect]
     Indication: FIBROMYALGIA

REACTIONS (2)
  - OSTEOPOROSIS [None]
  - HEARING IMPAIRED [None]
